FAERS Safety Report 15943207 (Version 2)
Quarter: 2019Q1

REPORT INFORMATION
  Report Type: Spontaneous
  Country: US (occurrence: US)
  Receive Date: 20190210
  Receipt Date: 20190228
  Transmission Date: 20190417
  Serious: Yes (Other)
  Sender: FDA-Public Use
  Company Number: US-ASTRAZENECA-2018SF00228

PATIENT

DRUGS (12)
  1. NAPROXEN. [Concomitant]
     Active Substance: NAPROXEN
  2. TRADJENTA [Concomitant]
     Active Substance: LINAGLIPTIN
  3. NEXIUM [Suspect]
     Active Substance: ESOMEPRAZOLE MAGNESIUM
     Route: 048
     Dates: start: 20071211, end: 20160701
  4. FINASTERIDE. [Concomitant]
     Active Substance: FINASTERIDE
  5. CETRIZINE [Concomitant]
     Active Substance: CETIRIZINE HYDROCHLORIDE
  6. LOSARTAN. [Concomitant]
     Active Substance: LOSARTAN
  7. NEXIUM [Suspect]
     Active Substance: ESOMEPRAZOLE MAGNESIUM
     Dosage: 40.0MG UNKNOWN
     Route: 048
     Dates: start: 20090403
  8. GABAPENTIN. [Concomitant]
     Active Substance: GABAPENTIN
  9. ASPIRIN. [Concomitant]
     Active Substance: ASPIRIN
  10. LYRICA [Concomitant]
     Active Substance: PREGABALIN
  11. LISINOPRIL. [Concomitant]
     Active Substance: LISINOPRIL
  12. NEXIUM [Suspect]
     Active Substance: ESOMEPRAZOLE MAGNESIUM
     Route: 048
     Dates: start: 200712, end: 201607

REACTIONS (3)
  - Acute kidney injury [Unknown]
  - Chronic kidney disease [Unknown]
  - Renal injury [Unknown]
